FAERS Safety Report 5802941-7 (Version None)
Quarter: 2008Q3

REPORT INFORMATION
  Report Type: 
  Country: None (occurrence: None)
  Receive Date: 20080708
  Receipt Date: 20080702
  Transmission Date: 20090109
  Serious: Yes (Other)
  Sender: FDA-Public Use
  Company Number: US-ROCHE-573942

PATIENT
  Sex: Female

DRUGS (2)
  1. PEG-INTERFERON A-2A (RO 25-8310) [Suspect]
     Dosage: FORM: PFS
     Route: 065
     Dates: start: 20071005, end: 20080627
  2. RIBAVIRIN [Suspect]
     Route: 065
     Dates: start: 20071005, end: 20080630

REACTIONS (1)
  - ASTHMA [None]
